FAERS Safety Report 6761014-X (Version None)
Quarter: 2010Q2

REPORT INFORMATION
  Report Type: 
  Country: None (occurrence: None)
  Receive Date: 20100608
  Receipt Date: 20100602
  Transmission Date: 20101027
  Serious: Yes (Hospitalization)
  Sender: FDA-Public Use
  Company Number: A0863146A

PATIENT
  Sex: Male

DRUGS (25)
  1. EPZICOM [Suspect]
     Indication: HIV INFECTION
     Route: 048
     Dates: start: 20050104
  2. RALTEGRAVIR [Concomitant]
     Dates: start: 20080416
  3. RITONAVIR [Concomitant]
     Dates: start: 20040415
  4. FOSAMPRENAVIR [Concomitant]
     Dates: start: 20040415
  5. NITROGLYCERIN [Concomitant]
     Dates: start: 20020715
  6. ATORVASTATIN [Concomitant]
     Dates: start: 20010715
  7. NIACIN [Concomitant]
     Dates: start: 20070421
  8. ASPIRIN [Concomitant]
     Dates: start: 20010715
  9. ATENOLOL [Concomitant]
     Dates: start: 20020715
  10. LEVOTHYROXINE SODIUM [Concomitant]
     Dates: start: 20020715
  11. GABAPENTIN [Concomitant]
     Dates: start: 19970715
  12. SERTRALINE HCL [Concomitant]
     Dates: start: 20040715
  13. MONTELUKAST [Concomitant]
     Dates: start: 20020715
  14. ALBUTEROL [Concomitant]
     Dates: start: 19730715
  15. ALBUTEROL + IPRATROPIUM BROMIDE [Concomitant]
     Dates: start: 20020715
  16. SALMETEROL [Concomitant]
     Dates: start: 20020715
  17. FLUTICASONE PROPIONATE [Concomitant]
     Dates: start: 20020715
  18. METOCLOPRAMIDE [Concomitant]
     Dates: start: 20060417
  19. ESOMEPRAZOLE [Concomitant]
     Dates: start: 20010715
  20. DOCUSATE [Concomitant]
     Dates: start: 20000715
  21. PIMECROLIMUS [Concomitant]
     Dates: start: 20030715
  22. MULTI-VITAMIN [Concomitant]
     Dates: start: 19800715
  23. VITAMIN C [Concomitant]
     Dates: start: 19930715
  24. VITAMIN B-12 [Concomitant]
     Dates: start: 20030715
  25. VITAMIN D [Concomitant]
     Dates: start: 20081004

REACTIONS (1)
  - CHEST PAIN [None]
